FAERS Safety Report 18980347 (Version 1)
Quarter: 2021Q1

REPORT INFORMATION
  Report Type: Report from Study
  Country: DE (occurrence: DE)
  Receive Date: 20210308
  Receipt Date: 20210308
  Transmission Date: 20210420
  Serious: Yes (Death)
  Sender: FDA-Public Use
  Company Number: DE-PFIZER INC-2021238621

PATIENT

DRUGS (7)
  1. CALCIUM FOLINATE [Suspect]
     Active Substance: LEUCOVORIN CALCIUM
     Indication: ADENOCARCINOMA GASTRIC
     Dosage: 500 MG/M2, CYCLIC (AS A 2 H INFUSION)
  2. DEXAMETHASONE. [Concomitant]
     Active Substance: DEXAMETHASONE
     Indication: PROPHYLAXIS
     Dosage: 20 MG (30 MINUTES PRIOR TO PACLITAXEL)
  3. FLUOROURACIL. [Suspect]
     Active Substance: FLUOROURACIL
     Indication: ADENOCARCINOMA GASTRIC
     Dosage: 2000 MG/M2, CYCLIC (24 H?CONTINUOUS INFUSION PRECEDED BY 500 MG/M2 FOLIC ACID AS A 2 H INFUSION)
  4. CISPLATIN. [Suspect]
     Active Substance: CISPLATIN
     Indication: ADENOCARCINOMA GASTRIC
     Dosage: 50 MG/M2, CYCLIC (ON DAYS 8 AND 29 TO THE 24 H?INFUSION 5?FU BACKBONE OF THE REGIMEN)
  5. PACLITAXEL. [Suspect]
     Active Substance: PACLITAXEL
     Indication: ADENOCARCINOMA GASTRIC
     Dosage: 175 MG/M2, CYCLIC (ON DAYS 1 AND 22 AS A 3 H INFUSION)
  6. DIPHENHYDRAMINE. [Concomitant]
     Active Substance: DIPHENHYDRAMINE
     Indication: PROPHYLAXIS
     Dosage: 50 MG (30 MINUTES PRIOR TO PACLITAXEL)
  7. RANITIDINE. [Concomitant]
     Active Substance: RANITIDINE
     Indication: PROPHYLAXIS
     Dosage: 300 MG (30 MINUTES PRIOR TO PACLITAXEL)

REACTIONS (1)
  - Tumour haemorrhage [Fatal]
